FAERS Safety Report 16267757 (Version 2)
Quarter: 2019Q2

REPORT INFORMATION
  Report Type: Spontaneous
  Country: IT (occurrence: IT)
  Receive Date: 20190503
  Receipt Date: 20190613
  Transmission Date: 20190711
  Serious: Yes (Life-Threatening)
  Sender: FDA-Public Use
  Company Number: IT-HORIZON-PRE-0193-2019

PATIENT
  Age: 45 Year
  Sex: Female

DRUGS (5)
  1. SATIVEX [Suspect]
     Active Substance: NABIXIMOLS
     Indication: MULTIPLE SCLEROSIS
     Dosage: 6 DOSAGE FORM
  2. LEMTRADA [Suspect]
     Active Substance: ALEMTUZUMAB
     Indication: MULTIPLE SCLEROSIS
     Dosage: 3 DOSAGE FORM DAILY
     Route: 042
     Dates: start: 20180515, end: 20180517
  3. PREDNISONE. [Suspect]
     Active Substance: PREDNISONE
     Indication: RHEUMATOID ARTHRITIS
     Dosage: 1 DOSAGE FORM DAILY
     Route: 048
     Dates: start: 20190406, end: 20190408
  4. ESCITALOPRAM OXALATE. [Concomitant]
     Active Substance: ESCITALOPRAM OXALATE
     Indication: DEPRESSION
     Dosage: 1 DOSAGE FORM
     Route: 048
  5. VESIKER 5 MG, COMPRESSE RIVESTIITE CON FILM [Concomitant]
     Indication: NEUROGENIC BLADDER
     Dosage: 1 DOSAGE FORM
     Route: 048

REACTIONS (10)
  - Vomiting [Unknown]
  - Herpes zoster [Unknown]
  - Haemolytic anaemia [Unknown]
  - Klebsiella infection [Unknown]
  - Renal failure [Unknown]
  - Abdominal pain [Unknown]
  - Sepsis [Unknown]
  - Pyrexia [Unknown]
  - Respiratory failure [Unknown]
  - Constipation [Unknown]

NARRATIVE: CASE EVENT DATE: 20190409
